FAERS Safety Report 5864346-2 (Version None)
Quarter: 2008Q3

REPORT INFORMATION
  Report Type: 
  Country: None (occurrence: None)
  Receive Date: 20080829
  Receipt Date: 20080827
  Transmission Date: 20090109
  Serious: Yes (Hospitalization)
  Sender: FDA-Public Use
  Company Number: DE-RB-002796-08

PATIENT
  Age: 46 Year
  Sex: Female

DRUGS (3)
  1. SUBOXONE [Suspect]
     Indication: DRUG THERAPY
     Route: 060
     Dates: start: 20080529, end: 20080610
  2. SYMBICORT [Concomitant]
     Indication: ASTHMA
     Dosage: DOSING INFORMATION UNKNOWN
  3. THEOPHYLLINE [Concomitant]
     Indication: ASTHMA
     Dosage: DOSING INFORMATION UNKNOWN

REACTIONS (4)
  - BLOOD CREATININE INCREASED [None]
  - C-REACTIVE PROTEIN INCREASED [None]
  - OEDEMA [None]
  - RENAL FAILURE ACUTE [None]
